FAERS Safety Report 8070772-6 (Version None)
Quarter: 2012Q1

REPORT INFORMATION
  Report Type: 
  Country: None (occurrence: None)
  Receive Date: 20120125
  Receipt Date: 20120113
  Transmission Date: 20120608
  Serious: Yes (Hospitalization)
  Sender: FDA-Public Use
  Company Number: US-ELI_LILLY_AND_COMPANY-US201201004783

PATIENT
  Age: 52 Year
  Sex: Female

DRUGS (6)
  1. WELLBUTRIN [Concomitant]
  2. CLONIDINE [Concomitant]
  3. MEPRAZOL [Concomitant]
  4. CYMBALTA [Suspect]
     Indication: DEPRESSION
     Dosage: 30 MG, QD
     Dates: start: 20090101
  5. CYMBALTA [Suspect]
     Dosage: 60 MG, QD
  6. METOPROLOL                         /00376901/ [Concomitant]

REACTIONS (3)
  - DEPRESSION [None]
  - POST-TRAUMATIC STRESS DISORDER [None]
  - INTENTIONAL DRUG MISUSE [None]
